FAERS Safety Report 17618985 (Version 1)
Quarter: 2020Q2

REPORT INFORMATION
  Report Type: Spontaneous
  Country: BR (occurrence: BR)
  Receive Date: 20200402
  Receipt Date: 20200402
  Transmission Date: 20200713
  Serious: Yes (Other)
  Sender: FDA-Public Use
  Company Number: BR-ABBVIE-20P-020-3348455-00

PATIENT
  Sex: Female
  Weight: 12.6 kg

DRUGS (7)
  1. DEPAKOTE [Suspect]
     Active Substance: DIVALPROEX SODIUM
     Dosage: THERAPY STARTED AFTER DEPAKENE CAPSULE SUSPENSION; SINCE HERS 3/4 MONTHS OLD
     Route: 048
  2. DEPAKOTE [Suspect]
     Active Substance: DIVALPROEX SODIUM
     Indication: INFANTILE SPASMS
     Dosage: DD: 625MG; 2 CAPSULES IN THE MORNING/ 3 CAPSULES AT NIGHT;
     Route: 048
     Dates: start: 201908, end: 201908
  3. SABRIL [Concomitant]
     Active Substance: VIGABATRIN
     Indication: INFANTILE SPASMS
     Dosage: DD: 3 TABLETS; PRESCRIBED IN CONJUNCTION WITH DEPAKOTE SPRINKLE
     Route: 048
  4. DEPAKOTE [Suspect]
     Active Substance: DIVALPROEX SODIUM
     Dosage: DD:500MG; IN THE MORNING/ AT NIGHT; DOSE INCREASED TO 3 CAPSULES AT NIGHT
     Route: 048
     Dates: start: 201908, end: 201908
  5. BIOTIN [Concomitant]
     Active Substance: BIOTIN
     Route: 048
     Dates: start: 201906
  6. DEPAKENE [Suspect]
     Active Substance: VALPROIC ACID
     Indication: PRODUCT USED FOR UNKNOWN INDICATION
     Route: 048
  7. BIOTIN [Concomitant]
     Active Substance: BIOTIN
     Indication: BIOTIN DEFICIENCY
     Route: 048
     Dates: start: 201804

REACTIONS (21)
  - Food intolerance [Unknown]
  - Somnolence [Recovering/Resolving]
  - Regurgitation [Recovering/Resolving]
  - Platelet count decreased [Unknown]
  - Food refusal [Unknown]
  - Abdominal discomfort [Unknown]
  - Electrocardiogram abnormal [Unknown]
  - Intestinal haemorrhage [Unknown]
  - Faeces discoloured [Not Recovered/Not Resolved]
  - Gastrointestinal disorder [Not Recovered/Not Resolved]
  - Product use issue [Unknown]
  - Product quality issue [Unknown]
  - Dyskinesia [Recovering/Resolving]
  - Rash macular [Recovered/Resolved]
  - Tremor [Recovering/Resolving]
  - Off label use [Unknown]
  - Weight decreased [Recovering/Resolving]
  - Product residue present [Unknown]
  - Overdose [Unknown]
  - Eye movement disorder [Recovering/Resolving]
  - Anticonvulsant drug level increased [Unknown]

NARRATIVE: CASE EVENT DATE: 2019
